FAERS Safety Report 8265204-9 (Version None)
Quarter: 2012Q2

REPORT INFORMATION
  Report Type: 
  Country: None (occurrence: None)
  Receive Date: 20120406
  Receipt Date: 20120327
  Transmission Date: 20120825
  Serious: Yes (Other)
  Sender: FDA-Public Use
  Company Number: US-ROCHE-1053695

PATIENT
  Sex: Male

DRUGS (3)
  1. OXYCONTIN [Concomitant]
  2. OXYCODONE HCL [Concomitant]
  3. VALIUM [Suspect]
     Indication: PRODUCT USED FOR UNKNOWN INDICATION

REACTIONS (3)
  - INGUINAL HERNIA [None]
  - LIMB INJURY [None]
  - ROAD TRAFFIC ACCIDENT [None]
